FAERS Safety Report 9621624 (Version 1)
Quarter: 2013Q4

REPORT INFORMATION
  Report Type: Spontaneous
  Country: FR (occurrence: FR)
  Receive Date: 20131015
  Receipt Date: 20131015
  Transmission Date: 20140711
  Serious: Yes (Hospitalization)
  Sender: FDA-Public Use
  Company Number: FR-TEVA-436459ISR

PATIENT
  Age: 68 Year
  Sex: Male

DRUGS (14)
  1. SODIUM PAMIDRONATE RATIOPHARM [Suspect]
     Indication: PLASMA CELL MYELOMA
     Route: 042
     Dates: start: 20130821, end: 20130821
  2. TOPALGIC [Suspect]
     Indication: PAIN
     Route: 048
     Dates: start: 20130821, end: 20130827
  3. ALPRAZOLAM MYLAN [Suspect]
     Indication: ANXIETY
     Dosage: .75 MILLIGRAM DAILY;
     Route: 048
     Dates: start: 20130822, end: 20130827
  4. DOLIPRANE [Suspect]
     Indication: PAIN
     Dosage: 4 GRAM DAILY;
     Route: 048
     Dates: start: 20130823, end: 20130826
  5. PRIMPERAN [Suspect]
     Indication: NAUSEA
     Route: 048
     Dates: start: 20130826, end: 20130827
  6. FORLAX [Concomitant]
     Indication: CONSTIPATION
     Route: 048
     Dates: start: 20130826, end: 20130826
  7. DEXAMETHASONE MYLAN [Concomitant]
     Indication: PLASMA CELL MYELOMA
     Dosage: 40 MILLIGRAM DAILY;
     Route: 042
     Dates: start: 20130821, end: 20130824
  8. MORPHINE (CHLORHYDRATE) RENAUDIN 1MG/ML [Concomitant]
     Indication: PAIN
     Route: 042
     Dates: start: 20130822, end: 20130830
  9. LOVENOX [Concomitant]
     Indication: PROPHYLAXIS
     Route: 058
     Dates: start: 20130821
  10. ACEBUTOLOL [Concomitant]
  11. AMLODIPINE [Concomitant]
  12. KARDEGIC [Concomitant]
  13. TAHOR [Concomitant]
  14. ESOMEPRAZOLE [Concomitant]

REACTIONS (1)
  - Hepatocellular injury [Recovered/Resolved]
